FAERS Safety Report 20626757 (Version 1)
Quarter: 2022Q1

REPORT INFORMATION
  Report Type: Report from Study
  Country: US (occurrence: US)
  Receive Date: 20220323
  Receipt Date: 20220323
  Transmission Date: 20220423
  Serious: Yes (Other)
  Sender: FDA-Public Use
  Company Number: US-NOVARTISPH-NVSC2022US062699

PATIENT
  Age: 28 Year
  Sex: Male

DRUGS (2)
  1. DEXAMETHASONE [Suspect]
     Active Substance: DEXAMETHASONE
     Indication: Immune thrombocytopenia
     Dosage: UNK
     Route: 065
  2. DAPSONE [Concomitant]
     Active Substance: DAPSONE
     Indication: Antibiotic therapy
     Dosage: UNK
     Route: 065

REACTIONS (20)
  - Rectal haemorrhage [Unknown]
  - Headache [Unknown]
  - Migraine [Unknown]
  - Platelet count abnormal [Unknown]
  - Cognitive disorder [Unknown]
  - General physical health deterioration [Unknown]
  - Asthenia [Unknown]
  - Fatigue [Unknown]
  - Emotional disorder [Unknown]
  - Depressed mood [Unknown]
  - Initial insomnia [Unknown]
  - Hypersomnia [Unknown]
  - Decreased appetite [Unknown]
  - Eating disorder [Unknown]
  - Feeling abnormal [Unknown]
  - Disturbance in attention [Unknown]
  - Restlessness [Unknown]
  - Anxiety [Unknown]
  - Drug ineffective for unapproved indication [Unknown]
  - Bradykinesia [Unknown]
